FAERS Safety Report 9727525 (Version 2)
Quarter: 2014Q1

REPORT INFORMATION
  Report Type: Spontaneous
  Country: JP (occurrence: None)
  Receive Date: 20131127
  Receipt Date: 20140109
  Transmission Date: 20141002
  Serious: Yes (Hospitalization)
  Sender: FDA-Public Use
  Company Number: SYM-2013-13236

PATIENT
  Age: 41 Year
  Sex: Female

DRUGS (9)
  1. 5 FU [Suspect]
     Indication: COLORECTAL CANCER METASTATIC
     Route: 040
     Dates: start: 20131101, end: 20131101
  2. IRINOTECAN (IRINOTECAN) (SOLUTION FOR INFUSION) (IRINOTECAN) [Suspect]
     Indication: COLORECTAL CANCER METASTATIC
     Route: 041
     Dates: start: 20131101, end: 20131101
  3. LEUCOVORIN (FOLINIC ACID) (SOLUTION FOR INFUSION) (FOLINIC ACID) [Suspect]
     Indication: COLORECTAL CANCER METASTATIC
     Dosage: 303 MG, EVERY OTHER WEEK, INTRAVENOUS DRIP
     Route: 041
     Dates: start: 20131101, end: 20131101
  4. BLINDED THERAPY (OTHER THERAPEUTIC PRODUCTS) (SOLUTION FOR INFUSION) (NULL) [Suspect]
     Route: 041
     Dates: start: 20131101, end: 20131101
  5. OXYCONTIN (OXYCODONE HYDROCHLORIDE) [Concomitant]
  6. LOXONIN (LOXOPROFEN SODIUM (LOXOPROFEN SODIUM) [Concomitant]
  7. SELBEX (TEPRENONE) (TEPRENONE) [Concomitant]
  8. AMLODIN (AMLODIPINE BESILATE) (AMLODIPINE BESILATE) [Concomitant]
  9. OXINORM (OXYCODONE HYDROCHLORIDE) (OXYCODONE HYDROCHLORIDE) [Concomitant]

REACTIONS (20)
  - Abdominal pain upper [None]
  - Ileus [None]
  - Mechanical ileus [None]
  - Blood pressure increased [None]
  - Back pain [None]
  - Adhesion [None]
  - Heart rate increased [None]
  - Inadequate analgesia [None]
  - White blood cell count decreased [None]
  - Haemoglobin decreased [None]
  - Blood albumin decreased [None]
  - Body temperature increased [None]
  - Delirium [None]
  - Dysuria [None]
  - Restlessness [None]
  - Anxiety [None]
  - Akathisia [None]
  - Haematocrit decreased [None]
  - Red blood cell count decreased [None]
  - Post procedural complication [None]
